FAERS Safety Report 4434060-9 (Version None)
Quarter: 2004Q3

REPORT INFORMATION
  Report Type: 
  Country: None (occurrence: None)
  Receive Date: 20040825
  Receipt Date: 20040817
  Transmission Date: 20050211
  Serious: Yes (Hospitalization)
  Sender: FDA-Public Use
  Company Number: 2004227446AR

PATIENT
  Age: 76 Year
  Sex: Female
  Weight: 45 kg

DRUGS (5)
  1. VALDECOXIB [Suspect]
     Indication: PELVIC FRACTURE
     Dosage: 40 MG, QD, ORAL
     Route: 048
     Dates: start: 20040729, end: 20040802
  2. DILTIAZEM [Concomitant]
  3. GINKGO BILOBA (GINKGO BILOBA) [Concomitant]
  4. CALCIUM CARBONATE-SODIUM MONOFLUOROPHOSPHATE [Concomitant]
  5. KETOROLAC [Concomitant]

REACTIONS (2)
  - BILIARY TRACT DISORDER [None]
  - PANCREATITIS [None]
